FAERS Safety Report 4762032-3 (Version None)
Quarter: 2005Q3

REPORT INFORMATION
  Report Type: 
  Country: None (occurrence: None)
  Receive Date: 20050831
  Receipt Date: 20050624
  Transmission Date: 20060218
  Serious: No
  Sender: FDA-Public Use
  Company Number: PHEH2005US07171

PATIENT
  Sex: Female

DRUGS (1)
  1. ENABLEX(DARIFENACIN HYDROCHLORIDE) TABLET [Suspect]

REACTIONS (2)
  - CONSTIPATION [None]
  - VISION BLURRED [None]
